FAERS Safety Report 7619142-2 (Version None)
Quarter: 2011Q3

REPORT INFORMATION
  Report Type: 
  Country: None (occurrence: None)
  Receive Date: 20110718
  Receipt Date: 20110708
  Transmission Date: 20111222
  Serious: Yes (Hospitalization)
  Sender: FDA-Public Use
  Company Number: SE-ASTRAZENECA-2011SE41914

PATIENT
  Age: 57 Year
  Sex: Female

DRUGS (7)
  1. ZOFRAN [Concomitant]
     Route: 048
  2. ACETAMINOPHEN [Concomitant]
  3. KETOGAN [Concomitant]
     Dosage: 5 MG/ML
  4. INNOHEP [Concomitant]
  5. ACETAMINOPHEN [Concomitant]
  6. GABAPENTIN [Concomitant]
  7. OMEPRAZOLE [Suspect]
     Route: 048
     Dates: start: 20101201, end: 20110101

REACTIONS (1)
  - LIVER FUNCTION TEST ABNORMAL [None]
